FAERS Safety Report 13271944 (Version 1)
Quarter: 2017Q1

REPORT INFORMATION
  Report Type: Spontaneous
  Country: US (occurrence: US)
  Receive Date: 20170224
  Receipt Date: 20170224
  Transmission Date: 20170428
  Serious: Yes (Death)
  Sender: FDA-Public Use
  Company Number: None

PATIENT
  Age: 82 Year
  Sex: Female
  Weight: 90 kg

DRUGS (12)
  1. ADVAIR HFA [Concomitant]
     Active Substance: FLUTICASONE PROPIONATE\SALMETEROL XINAFOATE
  2. ASPIRIN. [Concomitant]
     Active Substance: ASPIRIN
  3. PROTAMINE [Suspect]
     Active Substance: PROTAMINE
     Indication: CARDIAC ABLATION
     Route: 042
     Dates: start: 20170202
  4. XOPENEX [Concomitant]
     Active Substance: LEVALBUTEROL HYDROCHLORIDE
  5. METOPROLOL. [Concomitant]
     Active Substance: METOPROLOL
  6. VITAMIN B12 [Concomitant]
     Active Substance: CYANOCOBALAMIN
  7. DICYCOLMINE [Concomitant]
  8. MONTELUKAST [Concomitant]
     Active Substance: MONTELUKAST SODIUM
  9. VITAMIN D3 [Concomitant]
     Active Substance: CHOLECALCIFEROL
  10. LISINOPRIL. [Concomitant]
     Active Substance: LISINOPRIL
  11. TUDORZIA [Concomitant]
  12. COLESTIPOL [Concomitant]
     Active Substance: COLESTIPOL

REACTIONS (2)
  - Cardiac arrest [None]
  - Blood pressure decreased [None]

NARRATIVE: CASE EVENT DATE: 20170202
